FAERS Safety Report 14187175 (Version 1)
Quarter: 2017Q4

REPORT INFORMATION
  Report Type: Spontaneous
  Country: FR (occurrence: FR)
  Receive Date: 20171114
  Receipt Date: 20171114
  Transmission Date: 20180321
  Serious: Yes (Other)
  Sender: FDA-Public Use
  Company Number: FR-MERCK KGAA-2033981

PATIENT
  Sex: Female

DRUGS (2)
  1. NOVOTHYROX [Suspect]
     Active Substance: LEVOTHYROXINE SODIUM
  2. NOVOTHYROX [Suspect]
     Active Substance: LEVOTHYROXINE SODIUM

REACTIONS (6)
  - Hyperthyroidism [None]
  - Constipation [None]
  - Nausea [None]
  - Gastrointestinal disorder [None]
  - Blood thyroid stimulating hormone increased [None]
  - Haemorrhoids thrombosed [None]
